FAERS Safety Report 19103446 (Version 1)
Quarter: 2021Q2

REPORT INFORMATION
  Report Type: Spontaneous
  Country: GB (occurrence: GB)
  Receive Date: 20210407
  Receipt Date: 20210407
  Transmission Date: 20210717
  Serious: Yes (Hospitalization, Other)
  Sender: FDA-Public Use
  Company Number: GB-CASPER PHARMA LLC-2021CAS000160

PATIENT
  Age: 77 Year
  Sex: Male

DRUGS (2)
  1. AZATHIOPRINE. [Suspect]
     Active Substance: AZATHIOPRINE
     Indication: IMMUNE THROMBOCYTOPENIA
     Dosage: 50 MILLIGRAM, TID
     Route: 065
  2. PREDNISOLONE. [Concomitant]
     Active Substance: PREDNISOLONE
     Indication: IMMUNE THROMBOCYTOPENIA
     Dosage: 10 MILLIGRAM, QD
     Route: 065

REACTIONS (5)
  - Atrial fibrillation [Recovered/Resolved]
  - Drug hypersensitivity [Recovered/Resolved]
  - Cutaneous vasculitis [Recovered/Resolved]
  - Renal failure [Recovered/Resolved]
  - Product use in unapproved indication [Unknown]
